FAERS Safety Report 6194440-0 (Version None)
Quarter: 2009Q2

REPORT INFORMATION
  Report Type: 
  Country: None (occurrence: None)
  Receive Date: 20090519
  Receipt Date: 20090515
  Transmission Date: 20091009
  Serious: Yes (Life-Threatening, Hospitalization, Disabling, Other)
  Sender: FDA-Public Use
  Company Number: GB-ASTRAZENECA-2005GB00482

PATIENT
  Age: 23823 Day
  Sex: Female

DRUGS (2)
  1. NOLVADEX [Suspect]
     Indication: BREAST CANCER
     Route: 048
     Dates: start: 19970528, end: 20020628
  2. BENDROFLUAZIDE [Concomitant]
     Indication: HYPERTENSION
     Dosage: STARTED PRIOR TO STUDY MEDICATION
     Route: 048

REACTIONS (6)
  - ANGINA PECTORIS [None]
  - DUODENAL ULCER [None]
  - PLEURAL EFFUSION [None]
  - PNEUMONIA ASPIRATION [None]
  - PULMONARY EMBOLISM [None]
  - THROMBOSIS [None]
